FAERS Safety Report 10264923 (Version 1)
Quarter: 2014Q2

REPORT INFORMATION
  Report Type: Spontaneous
  Country: US (occurrence: None)
  Receive Date: 20140625
  Receipt Date: 20140625
  Transmission Date: 20141212
  Serious: Yes (Hospitalization)
  Sender: FDA-Public Use
  Company Number: None

PATIENT
  Age: 70 Year
  Sex: Male
  Weight: 61.87 kg

DRUGS (1)
  1. CISPLATIN [Suspect]
     Dosage: PATIENT RECEIVED FIRST DOSE OF CISPLATIN ON 5/18/14:  CISPLATIN 173MG IN NAC1 0.9% 1000ML IV.  ?SECOND DOSE RECEIVED ON 6/9/14:  CISPLATIN 175MG IN NAC1 0.9% 1000ML UV

REACTIONS (2)
  - Lung infiltration [None]
  - Pneumonia [None]
